FAERS Safety Report 22307372 (Version 1)
Quarter: 2023Q2

REPORT INFORMATION
  Report Type: Spontaneous
  Country: US (occurrence: None)
  Receive Date: 20230511
  Receipt Date: 20230511
  Transmission Date: 20230722
  Serious: No
  Sender: FDA-Public Use
  Company Number: US-ROCHE-2910306

PATIENT
  Sex: Male
  Weight: 104.42 kg

DRUGS (5)
  1. OCREVUS [Suspect]
     Active Substance: OCRELIZUMAB
     Indication: JC polyomavirus test positive
     Dosage: DATE OF TREATMENT: 23/AUG/2021
     Route: 042
     Dates: start: 20210809
  2. AMPYRA [Concomitant]
     Active Substance: DALFAMPRIDINE
     Indication: Multiple sclerosis
     Route: 048
  3. MIRAPEX [Concomitant]
     Active Substance: PRAMIPEXOLE DIHYDROCHLORIDE
     Indication: Muscle spasms
     Dosage: TAKES IN THE MORNING, AT DINNER, AND BEDTIME
     Route: 048
     Dates: start: 2009
  4. BACLOFEN [Concomitant]
     Active Substance: BACLOFEN
     Indication: Muscle spasms
     Dosage: TAKES IN THE MORNING, AT NOON, AND AT NIGHT
     Route: 048
  5. VITAMIN D3 [Concomitant]
     Active Substance: CHOLECALCIFEROL
     Indication: Vitamin D deficiency
     Dates: start: 2010

REACTIONS (6)
  - Asthenia [Not Recovered/Not Resolved]
  - Headache [Unknown]
  - Off label use [Unknown]
  - Ill-defined disorder [Unknown]
  - Asthenia [Unknown]
  - Off label use [Unknown]
